FAERS Safety Report 12997503 (Version 2)
Quarter: 2017Q1

REPORT INFORMATION
  Report Type: Report from Study
  Country: CA (occurrence: CA)
  Receive Date: 20161205
  Receipt Date: 20170124
  Transmission Date: 20170428
  Serious: Yes (Hospitalization, Other)
  Sender: FDA-Public Use
  Company Number: PHHY2016CA163352

PATIENT
  Sex: Female

DRUGS (1)
  1. GLEEVEC [Suspect]
     Active Substance: IMATINIB MESYLATE
     Indication: GASTROINTESTINAL STROMAL TUMOUR
     Dosage: UNK
     Route: 048
     Dates: start: 20161014, end: 201612

REACTIONS (6)
  - Peripheral swelling [Unknown]
  - Swelling face [Unknown]
  - Pleural effusion [Unknown]
  - Eye swelling [Unknown]
  - Periorbital oedema [Unknown]
  - Coronary artery occlusion [Unknown]
